FAERS Safety Report 8339585-1 (Version None)
Quarter: 2012Q2

REPORT INFORMATION
  Report Type: 
  Country: None (occurrence: None)
  Receive Date: 20120507
  Receipt Date: 20120502
  Transmission Date: 20120825
  Serious: Yes (Other)
  Sender: FDA-Public Use
  Company Number: PHEH2012US009297

PATIENT
  Sex: Male

DRUGS (3)
  1. DIOVAN [Suspect]
     Dosage: 1.5 DF, DAILY (160 MG)
  2. SIMVASTATIN [Concomitant]
  3. SINGULAIR [Concomitant]

REACTIONS (2)
  - WRONG TECHNIQUE IN DRUG USAGE PROCESS [None]
  - ASTHMA [None]
